FAERS Safety Report 14656188 (Version 1)
Quarter: 2018Q1

REPORT INFORMATION
  Report Type: Spontaneous
  Country: GR (occurrence: GR)
  Receive Date: 20180319
  Receipt Date: 20180319
  Transmission Date: 20180509
  Serious: Yes (Other)
  Sender: FDA-Public Use
  Company Number: GR-TEVA-2018-GR-868741

PATIENT
  Age: 30 Year
  Sex: Female

DRUGS (1)
  1. COPAXONE [Suspect]
     Active Substance: GLATIRAMER ACETATE
     Indication: MULTIPLE SCLEROSIS
     Route: 058

REACTIONS (5)
  - Multiple sclerosis relapse [Unknown]
  - Scleroderma [Recovered/Resolved]
  - Injection site erythema [Recovered/Resolved]
  - Eosinophil count increased [Unknown]
  - Pruritus [Recovered/Resolved]
